FAERS Safety Report 17959306 (Version 3)
Quarter: 2021Q4

REPORT INFORMATION
  Report Type: Report from Study
  Country: DE (occurrence: DE)
  Receive Date: 20200629
  Receipt Date: 20211214
  Transmission Date: 20220303
  Serious: Yes (Death, Hospitalization)
  Sender: FDA-Public Use
  Company Number: DE-ACCORD-185940

PATIENT
  Sex: Female
  Weight: 92 kg

DRUGS (2)
  1. PEGFILGRASTIM [Suspect]
     Active Substance: PEGFILGRASTIM
     Indication: Product used for unknown indication
     Dosage: STRENGTH: 6 MG CYCLE 2
     Route: 058
     Dates: start: 20200424
  2. PEGFILGRASTIM [Suspect]
     Active Substance: PEGFILGRASTIM
     Dosage: 6 MILLIGRAM, CYCLE (STRENGTH: 6 MG CYCLE 3)
     Route: 058
     Dates: start: 20200531

REACTIONS (3)
  - Disease progression [Fatal]
  - Pancytopenia [Unknown]
  - Urinary tract infection [Unknown]

NARRATIVE: CASE EVENT DATE: 20200506
